FAERS Safety Report 5310486-6 (Version None)
Quarter: 2007Q2

REPORT INFORMATION
  Report Type: 
  Country: None (occurrence: None)
  Receive Date: 20070427
  Receipt Date: 20070417
  Transmission Date: 20071010
  Serious: Yes (Other)
  Sender: FDA-Public Use
  Company Number: US-PFIZER INC-2007031798

PATIENT
  Sex: Male
  Weight: 131 kg

DRUGS (10)
  1. XALATAN [Suspect]
     Indication: INTRAOCULAR PRESSURE TEST
     Dosage: TEXT:1 DROP EACH EYE
     Dates: start: 20070201, end: 20070413
  2. LORATADINE [Concomitant]
  3. ASPIRIN [Concomitant]
  4. SIMVASTATIN [Concomitant]
  5. FUROSEMIDE [Concomitant]
  6. POTASSIUM ACETATE [Concomitant]
  7. CLOPIDOGREL [Concomitant]
  8. GLYBURIDE [Concomitant]
  9. ATENOLOL [Concomitant]
  10. LISINOPRIL [Concomitant]

REACTIONS (4)
  - BLINDNESS [None]
  - BLOOD GLUCOSE INCREASED [None]
  - EYE PAIN [None]
  - EYELID FUNCTION DISORDER [None]
